FAERS Safety Report 17144752 (Version 1)
Quarter: 2019Q4

REPORT INFORMATION
  Report Type: Spontaneous
  Country: US (occurrence: US)
  Receive Date: 20191212
  Receipt Date: 20191212
  Transmission Date: 20200122
  Serious: No
  Sender: FDA-Public Use
  Company Number: US-NOVEN PHARMACEUTICALS, INC.-US2019000236

PATIENT

DRUGS (7)
  1. TESTOSTERONE CYPIONATE. [Concomitant]
     Active Substance: TESTOSTERONE CYPIONATE
     Dosage: 50 MG, 1/WEEK
     Route: 030
  2. ESTRADIOL. [Suspect]
     Active Substance: ESTRADIOL
     Indication: HOT FLUSH
     Dosage: 0.025 MG, 1/WEEK
     Route: 062
  3. TESTOSTERONE CYPIONATE. [Concomitant]
     Active Substance: TESTOSTERONE CYPIONATE
     Dosage: 100 MG, EVERY TWO WEEKS
     Route: 030
  4. ESTRADIOL. [Suspect]
     Active Substance: ESTRADIOL
     Dosage: 0.0375 MG, 2/WK
     Route: 062
  5. TESTOSTERONE CYPIONATE. [Concomitant]
     Active Substance: TESTOSTERONE CYPIONATE
     Indication: HOT FLUSH
     Dosage: 100 MG, EVERY TWO WEEKS
     Route: 030
  6. ESTRADIOL. [Suspect]
     Active Substance: ESTRADIOL
     Dosage: 0.025 MG, 2/WK
     Route: 062
  7. TESTOSTERONE CYPIONATE. [Concomitant]
     Active Substance: TESTOSTERONE CYPIONATE
     Dosage: 150 MG, EVERY TWO WEEKS
     Route: 030

REACTIONS (3)
  - Therapy cessation [Not Recovered/Not Resolved]
  - Off label use [Recovered/Resolved]
  - No adverse event [Unknown]
